FAERS Safety Report 9648800 (Version 2)
Quarter: 2013Q4

REPORT INFORMATION
  Report Type: Spontaneous
  Country: US (occurrence: US)
  Receive Date: 20131028
  Receipt Date: 20131118
  Transmission Date: 20140711
  Serious: Yes (Hospitalization)
  Sender: FDA-Public Use
  Company Number: US-BAYER-2013-129930

PATIENT
  Age: 36 Year
  Sex: Female
  Weight: 71 kg

DRUGS (14)
  1. YAZ [Suspect]
  2. YASMIN [Suspect]
  3. GIANVI [Suspect]
  4. OCELLA [Suspect]
  5. TOPAMAX [Concomitant]
     Dosage: 100 MG, UNK
  6. CELEXA [Concomitant]
     Dosage: 10 MG, UNK
  7. SUMATRIPTAN [Concomitant]
     Dosage: 100 MG, UNK
  8. TEMAZEPAM [Concomitant]
     Dosage: 30 MG, UNK
  9. HYDROCODONE W/APAP [Concomitant]
     Dosage: 5/500 MG
  10. FLUCONAZOLE [Concomitant]
     Dosage: 150 MG, UNK
  11. DIAZEPAM [Concomitant]
     Dosage: 5 MG, UNK
  12. CIPROFLOXACIN [Concomitant]
     Dosage: 500 MG, UNK
  13. IBUPROFEN [Concomitant]
     Dosage: 600 MG, UNK
  14. IMITREX [Concomitant]

REACTIONS (1)
  - Pulmonary embolism [None]
